FAERS Safety Report 19029949 (Version 1)
Quarter: 2021Q1

REPORT INFORMATION
  Report Type: Spontaneous
  Country: US (occurrence: US)
  Receive Date: 20210318
  Receipt Date: 20210318
  Transmission Date: 20210420
  Serious: Yes (Death)
  Sender: FDA-Public Use
  Company Number: None

PATIENT
  Age: 55 Year
  Sex: Male
  Weight: 75 kg

DRUGS (19)
  1. CASIRIVIMAB?IMDEVIMAB [Suspect]
     Active Substance: CASIRIVIMAB\IMDEVIMAB
     Indication: COVID-19
     Dates: start: 20210317, end: 20210317
  2. MEROPENEM. [Concomitant]
     Active Substance: MEROPENEM
     Dates: start: 20210227
  3. GANCICLOVIR. [Concomitant]
     Active Substance: GANCICLOVIR
     Dates: start: 20210314
  4. HYDROCORTISONE. [Concomitant]
     Active Substance: HYDROCORTISONE
     Dates: start: 20210317
  5. MIDAZOLAM. [Concomitant]
     Active Substance: MIDAZOLAM
     Dates: start: 20210316
  6. PANTOPRAZOLE [Concomitant]
     Active Substance: PANTOPRAZOLE
     Dates: start: 20210317
  7. LEVOFLOXACIN. [Concomitant]
     Active Substance: LEVOFLOXACIN
     Dates: start: 20210310
  8. VASOPRESSIN. [Concomitant]
     Active Substance: VASOPRESSIN
     Dates: start: 20210317
  9. INSULIN [Concomitant]
     Active Substance: INSULIN NOS
     Dates: start: 20210227
  10. TACROLIMUS. [Concomitant]
     Active Substance: TACROLIMUS
     Dates: start: 20210227
  11. AMBISOME [Concomitant]
     Active Substance: AMPHOTERICIN B
     Dates: start: 20210303
  12. SULFAMETHOXAZOLE?TRIMETHOPRIM [Concomitant]
     Active Substance: SULFAMETHOXAZOLE\TRIMETHOPRIM
     Dates: start: 20210227
  13. DEXMEDETOMIDINE. [Concomitant]
     Active Substance: DEXMEDETOMIDINE
     Dates: start: 20210316
  14. NOREPINEPRHINE [Concomitant]
     Dates: start: 20210314
  15. PROPOFOL. [Concomitant]
     Active Substance: PROPOFOL
     Dates: start: 20210313
  16. ISAVUCONAZONIUM [Concomitant]
     Active Substance: ISAVUCONAZONIUM
     Dates: start: 20210226
  17. REMDESIVIR. [Concomitant]
     Active Substance: REMDESIVIR
     Dates: start: 20210315
  18. CISATRACURIUM. [Concomitant]
     Active Substance: CISATRACURIUM
     Dates: start: 20210316
  19. FENTANYL. [Concomitant]
     Active Substance: FENTANYL
     Dates: start: 20210309

REACTIONS (1)
  - Respiratory failure [None]

NARRATIVE: CASE EVENT DATE: 20210318
